FAERS Safety Report 5397671-2 (Version None)
Quarter: 2007Q3

REPORT INFORMATION
  Report Type: 
  Country: None (occurrence: None)
  Receive Date: 20070723
  Receipt Date: 20070723
  Transmission Date: 20080115
  Serious: Yes (Other)
  Sender: FDA-Public Use
  Company Number: None

PATIENT
  Sex: Female
  Weight: 113.8529 kg

DRUGS (3)
  1. ABRAXANE [Suspect]
     Indication: BREAST CANCER METASTATIC
     Dosage: 220 MG 3 WKS ON, 1 WK OFF IV
     Route: 042
     Dates: start: 20061129, end: 20070701
  2. ARANESP [Suspect]
     Indication: ANAEMIA
     Dosage: 100 MG QWEEK SQ
     Route: 058
     Dates: start: 20051118, end: 20070701
  3. ARANESP [Suspect]
     Indication: CHEMOTHERAPY
     Dosage: 100 MG QWEEK SQ
     Route: 058
     Dates: start: 20051118, end: 20070701

REACTIONS (5)
  - ADVERSE EVENT [None]
  - FEELING OF BODY TEMPERATURE CHANGE [None]
  - NAIL DISORDER [None]
  - NEUROPATHY PERIPHERAL [None]
  - SENSITIVITY OF TEETH [None]
